FAERS Safety Report 19107673 (Version 1)
Quarter: 2021Q2

REPORT INFORMATION
  Report Type: Spontaneous
  Country: US (occurrence: US)
  Receive Date: 20210408
  Receipt Date: 20210408
  Transmission Date: 20210717
  Serious: No
  Sender: FDA-Public Use
  Company Number: None

PATIENT
  Age: 51 Year
  Sex: Female

DRUGS (1)
  1. OCTREOTIDE MDV 5000MCG/5ML [Suspect]
     Active Substance: OCTREOTIDE ACETATE
     Dosage: ?          OTHER STRENGTH:5000MCG/5ML;?
     Route: 058
     Dates: start: 202104

REACTIONS (1)
  - Liver transplant [None]

NARRATIVE: CASE EVENT DATE: 20210408
